FAERS Safety Report 12182309 (Version 1)
Quarter: 2016Q1

REPORT INFORMATION
  Report Type: Report from Study
  Country: FR (occurrence: FR)
  Receive Date: 20160316
  Receipt Date: 20160316
  Transmission Date: 20160526
  Serious: Yes (Hospitalization)
  Sender: FDA-Public Use
  Company Number: FR-ROCHE-1724886

PATIENT
  Sex: Male
  Weight: 66 kg

DRUGS (3)
  1. BEVACIZUMAB [Suspect]
     Active Substance: BEVACIZUMAB
     Indication: OVARIAN CANCER
     Dosage: DATE OF LAST DOSE PRIOR TO SAE WAS ON: 12/NOV/2015 (525 MG)
     Route: 042
     Dates: start: 20150910
  2. CARBOPLATINE [Suspect]
     Active Substance: CARBOPLATIN
     Indication: OVARIAN CANCER
     Dosage: DATE OF LAST DOSE PRIOR TO SAE WAS ON: 22/OCT/2015 (464 MG)
     Route: 042
     Dates: start: 20150820
  3. ALIMTA [Suspect]
     Active Substance: PEMETREXED DISODIUM
     Indication: OVARIAN CANCER
     Dosage: DATE OF LAST DOSE PRIOR TO SAE WAS ON: 22/OCT/2015 (960)
     Route: 042
     Dates: start: 20150820

REACTIONS (2)
  - General physical health deterioration [Not Recovered/Not Resolved]
  - Confusional state [Not Recovered/Not Resolved]

NARRATIVE: CASE EVENT DATE: 20151203
